FAERS Safety Report 4305492-4 (Version None)
Quarter: 2004Q1

REPORT INFORMATION
  Report Type: 
  Country: None (occurrence: None)
  Receive Date: 20040226
  Receipt Date: 20031028
  Transmission Date: 20041129
  Serious: Yes (Hospitalization)
  Sender: FDA-Public Use
  Company Number: US-BRISTOL-MYERS SQUIBB COMPANY-12420022

PATIENT
  Age: 47 Year
  Sex: Male

DRUGS (4)
  1. ABILIFY [Suspect]
     Indication: PSYCHOTIC DISORDER
     Route: 048
     Dates: start: 20030801
  2. CLOZAPINE [Suspect]
  3. RISPERDAL [Concomitant]
     Indication: PSYCHOTIC DISORDER
     Dates: start: 20030901
  4. ZOLOFT [Concomitant]
     Dates: start: 20030901

REACTIONS (2)
  - NEUTROPENIA [None]
  - PSYCHOTIC DISORDER [None]
